FAERS Safety Report 14627980 (Version 2)
Quarter: 2018Q1

REPORT INFORMATION
  Report Type: Spontaneous
  Country: US (occurrence: US)
  Receive Date: 20180312
  Receipt Date: 20180329
  Transmission Date: 20180509
  Serious: No
  Sender: FDA-Public Use
  Company Number: US-ACTELION-A-NJ2018-168950

PATIENT
  Age: 68 Year
  Sex: Female

DRUGS (4)
  1. OPSUMIT [Suspect]
     Active Substance: MACITENTAN
     Indication: PULMONARY ARTERIAL HYPERTENSION
     Dosage: 10 MG, QD
     Route: 048
     Dates: start: 201802, end: 201803
  2. HUMALOG [Concomitant]
     Active Substance: INSULIN LISPRO
     Dosage: SLIDING SCALE
  3. SILDENAFIL. [Concomitant]
     Active Substance: SILDENAFIL
     Indication: PULMONARY ARTERIAL HYPERTENSION
     Dosage: 20 MG, TID
  4. LANTUS [Concomitant]
     Active Substance: INSULIN GLARGINE
     Dosage: 28 U, QPM

REACTIONS (4)
  - Epistaxis [Recovered/Resolved]
  - Headache [Recovered/Resolved]
  - Unevaluable event [Unknown]
  - Blood pressure decreased [Recovered/Resolved]

NARRATIVE: CASE EVENT DATE: 201802
